FAERS Safety Report 23771661 (Version 2)
Quarter: 2024Q2

REPORT INFORMATION
  Report Type: Spontaneous
  Country: CA (occurrence: CA)
  Receive Date: 20240423
  Receipt Date: 20240430
  Transmission Date: 20240715
  Serious: Yes (Life-Threatening, Hospitalization)
  Sender: FDA-Public Use
  Company Number: CA-CELLTRION INC.-2024CA009360

PATIENT

DRUGS (7)
  1. INFLECTRA [Suspect]
     Active Substance: INFLIXIMAB-DYYB
     Indication: Colitis ulcerative
     Dosage: 5 MG/KG, AT WEEK 0, 2 AND 6 THEN Q 8 WEEKS
     Route: 042
     Dates: start: 20240315
  2. INFLECTRA [Suspect]
     Active Substance: INFLIXIMAB-DYYB
     Dosage: 5 MG/KG, AT WEEK 0, 2 AND 6 THEN Q 8 WEEKS
     Route: 042
     Dates: start: 20240411
  3. PERINDOPRIL ARGININE [Concomitant]
     Active Substance: PERINDOPRIL ARGININE
     Dosage: UNK
  4. DILTIAZEM [Concomitant]
     Active Substance: DILTIAZEM
     Dosage: UNK
  5. LEVOTHYROXINE [Concomitant]
     Active Substance: LEVOTHYROXINE\LEVOTHYROXINE SODIUM
     Dosage: UNK
  6. RABEPRAZOLE SODIUM [Concomitant]
     Active Substance: RABEPRAZOLE SODIUM
     Dosage: UNK
  7. PREDNISONE [Concomitant]
     Active Substance: PREDNISONE
     Dosage: UNK

REACTIONS (9)
  - Dyspnoea [Unknown]
  - Tremor [Unknown]
  - Pain [Unknown]
  - Discomfort [Unknown]
  - Condition aggravated [Unknown]
  - Pain in extremity [Unknown]
  - Pain in jaw [Unknown]
  - Weight bearing difficulty [Unknown]
  - Oral disorder [Unknown]

NARRATIVE: CASE EVENT DATE: 20240411
